FAERS Safety Report 9840129 (Version 1)
Quarter: 2013Q4

REPORT INFORMATION
  Report Type: Spontaneous
  Country: US (occurrence: None)
  Receive Date: 20131211
  Receipt Date: 20131211
  Transmission Date: 20140711
  Serious: No
  Sender: FDA-Public Use
  Company Number: ALL1-2013-00830

PATIENT
  Age: 44 Year
  Sex: Female
  Weight: 70.3 kg

DRUGS (1)
  1. FIRAZYR [Suspect]
     Indication: ENZYME LEVEL DECREASED
     Route: 058
     Dates: start: 20130205

REACTIONS (3)
  - Heart rate increased [None]
  - Burning sensation [None]
  - Nausea [None]
